FAERS Safety Report 9304814 (Version 1)
Quarter: 2013Q2

REPORT INFORMATION
  Report Type: Spontaneous
  Country: US (occurrence: None)
  Receive Date: 20130521
  Receipt Date: 20130521
  Transmission Date: 20140414
  Serious: Yes (Other)
  Sender: FDA-Public Use
  Company Number: None

PATIENT
  Sex: 0

DRUGS (1)
  1. GAVISCON [Suspect]
     Dates: start: 201304, end: 20130424

REACTIONS (5)
  - Inflammation [None]
  - Chemical burn of gastrointestinal tract [None]
  - Blister [None]
  - Swollen tongue [None]
  - Product taste abnormal [None]
